FAERS Safety Report 17861289 (Version 1)
Quarter: 2020Q2

REPORT INFORMATION
  Report Type: Spontaneous
  Country: US (occurrence: US)
  Receive Date: 20200604
  Receipt Date: 20200604
  Transmission Date: 20200714
  Serious: No
  Sender: FDA-Public Use
  Company Number: US-HARMONY BIOSCIENCES-2020HMY00271

PATIENT
  Age: 39 Year
  Sex: Female
  Weight: 129.25 kg

DRUGS (13)
  1. SINGULAIR [Concomitant]
     Active Substance: MONTELUKAST SODIUM
  2. ACIDOPHILUS [Concomitant]
     Active Substance: LACTOBACILLUS ACIDOPHILUS
  3. WAKIX [Suspect]
     Active Substance: PITOLISANT HYDROCHLORIDE
     Indication: NARCOLEPSY
     Dosage: 8.9 MG, 1X/DAY
     Route: 048
     Dates: start: 20200310, end: 20200316
  4. WAKIX [Suspect]
     Active Substance: PITOLISANT HYDROCHLORIDE
     Indication: NARCOLEPSY
     Dosage: 17.8 MG, 1X/DAY
     Route: 048
     Dates: start: 20200317, end: 20200323
  5. BUSPAR [Concomitant]
     Active Substance: BUSPIRONE HYDROCHLORIDE
     Dosage: 10 MG, 3X/DAY
  6. FLONASE [Concomitant]
     Active Substance: FLUTICASONE PROPIONATE
     Dosage: UNK, 1X/DAY
  7. PROBIOTIC [Concomitant]
     Active Substance: PROBIOTICS NOS
  8. WAKIX [Suspect]
     Active Substance: PITOLISANT HYDROCHLORIDE
     Indication: CATAPLEXY
  9. OMEPRAZOLE. [Concomitant]
     Active Substance: OMEPRAZOLE
     Dosage: 40 MG, 1X/DAY IN THE MORNING
  10. WAKIX [Suspect]
     Active Substance: PITOLISANT HYDROCHLORIDE
     Indication: CATAPLEXY
     Dosage: 35.6 MG, 1X/DAY
     Route: 048
     Dates: start: 20200324
  11. GABAPENTIN. [Concomitant]
     Active Substance: GABAPENTIN
     Dosage: 400 MG, 2X/DAY
  12. LAMICTAL [Concomitant]
     Active Substance: LAMOTRIGINE
     Dosage: 200 MG, 1X/DAY AT NIGHT
  13. LITHIUM. [Concomitant]
     Active Substance: LITHIUM
     Dosage: 450 MG, 2X/DAY

REACTIONS (3)
  - Insomnia [Not Recovered/Not Resolved]
  - Drug ineffective [Not Recovered/Not Resolved]
  - Narcolepsy [Not Recovered/Not Resolved]

NARRATIVE: CASE EVENT DATE: 202003
